FAERS Safety Report 13838295 (Version 1)
Quarter: 2017Q3

REPORT INFORMATION
  Report Type: Spontaneous
  Country: US (occurrence: US)
  Receive Date: 20170807
  Receipt Date: 20170807
  Transmission Date: 20171127
  Serious: No
  Sender: FDA-Public Use
  Company Number: US-009507513-1708USA002202

PATIENT
  Age: 29 Year
  Sex: Female

DRUGS (1)
  1. NEXPLANON [Suspect]
     Active Substance: ETONOGESTREL
     Dosage: 1 IMPLANT / EVERY 3 YEARS
     Route: 059
     Dates: start: 20160525, end: 20170726

REACTIONS (3)
  - No adverse event [Unknown]
  - Device kink [Unknown]
  - Device breakage [Unknown]
